FAERS Safety Report 8151400-8 (Version None)
Quarter: 2012Q1

REPORT INFORMATION
  Report Type: 
  Country: None (occurrence: None)
  Receive Date: 20120220
  Receipt Date: 20120208
  Transmission Date: 20120608
  Serious: Yes (Life-Threatening, Other)
  Sender: FDA-Public Use
  Company Number: PL-ROCHE-1035667

PATIENT
  Sex: Female

DRUGS (4)
  1. LOPERAMIDE HCL [Concomitant]
     Indication: DIARRHOEA
     Route: 048
     Dates: start: 20071220, end: 20080201
  2. XELODA [Suspect]
     Indication: BREAST CANCER
     Route: 048
     Dates: start: 20071221
  3. XELODA [Suspect]
     Dosage: DOSE REDUCED
     Dates: start: 20120208
  4. MEGALIA [Concomitant]
     Indication: DECREASED APPETITE
     Route: 048
     Dates: start: 20071219, end: 20080131

REACTIONS (16)
  - NAUSEA [None]
  - DYSPNOEA EXERTIONAL [None]
  - METASTASES TO BONE [None]
  - EFFUSION [None]
  - HAEMATOTOXICITY [None]
  - MUSCULOSKELETAL PAIN [None]
  - BONE PAIN [None]
  - MALAISE [None]
  - BLOOD BILIRUBIN INCREASED [None]
  - DIARRHOEA [None]
  - ANAEMIA [None]
  - VOMITING [None]
  - THROMBOCYTOPENIA [None]
  - BACK PAIN [None]
  - PALMAR-PLANTAR ERYTHRODYSAESTHESIA SYNDROME [None]
  - LEUKOPENIA [None]
